FAERS Safety Report 25435018 (Version 3)
Quarter: 2025Q3

REPORT INFORMATION
  Report Type: Report from Study
  Country: CA (occurrence: CA)
  Receive Date: 20250613
  Receipt Date: 20250716
  Transmission Date: 20251020
  Serious: Yes (Other)
  Sender: BIOVITRUM
  Company Number: CA-BIOVITRUM-2025-CA-008356

PATIENT
  Age: 68 Year
  Sex: Male

DRUGS (1)
  1. KINERET [Suspect]
     Active Substance: ANAKINRA
     Indication: Familial mediterranean fever
     Route: 058
     Dates: start: 20250609

REACTIONS (3)
  - Syncope [Unknown]
  - Off label use [Not Recovered/Not Resolved]
  - Dizziness [Recovered/Resolved]

NARRATIVE: CASE EVENT DATE: 20250609
